FAERS Safety Report 8337899-2 (Version None)
Quarter: 2012Q2

REPORT INFORMATION
  Report Type: 
  Country: None (occurrence: None)
  Receive Date: 20120504
  Receipt Date: 20120423
  Transmission Date: 20120825
  Serious: Yes (Hospitalization)
  Sender: FDA-Public Use
  Company Number: CA-JNJFOC-20110803424

PATIENT
  Sex: Female
  Weight: 53.7 kg

DRUGS (3)
  1. REMICADE [Suspect]
     Indication: CROHN'S DISEASE
     Dosage: AROUND 2008
     Route: 042
  2. MULTI-VITAMINS [Concomitant]
     Route: 065
  3. ALESSE [Concomitant]
     Route: 065

REACTIONS (5)
  - MATERNAL EXPOSURE DURING PREGNANCY [None]
  - EATING DISORDER [None]
  - CROHN'S DISEASE [None]
  - URINARY INCONTINENCE [None]
  - LABOUR INDUCTION [None]
